FAERS Safety Report 9193249 (Version 1)
Quarter: 2013Q1

REPORT INFORMATION
  Report Type: Spontaneous
  Country: FR (occurrence: FR)
  Receive Date: 20130327
  Receipt Date: 20130327
  Transmission Date: 20140127
  Serious: Yes (Other)
  Sender: FDA-Public Use
  Company Number: FR-ASTRAZENECA-2013SE19310

PATIENT
  Age: 1003 Month
  Sex: Female

DRUGS (2)
  1. FASLODEX [Suspect]
     Indication: BREAST CANCER FEMALE
     Route: 030
     Dates: start: 20121101, end: 201302
  2. FEMARA [Suspect]
     Indication: BREAST CANCER FEMALE
     Route: 065
     Dates: start: 200908

REACTIONS (2)
  - Carbohydrate antigen 15-3 increased [Not Recovered/Not Resolved]
  - Carcinoembryonic antigen increased [Not Recovered/Not Resolved]
